FAERS Safety Report 6908416-6 (Version None)
Quarter: 2010Q3

REPORT INFORMATION
  Report Type: 
  Country: None (occurrence: None)
  Receive Date: 20100803
  Receipt Date: 20100719
  Transmission Date: 20110219
  Serious: Yes (Other)
  Sender: FDA-Public Use
  Company Number: AUR-APL-2010-01674

PATIENT
  Age: 56 Year
  Sex: Male
  Weight: 90.7 kg

DRUGS (14)
  1. METFORMIN HCL [Suspect]
     Indication: DIABETES MELLITUS
     Dosage: 4000MG, DAILY
     Dates: start: 20011101, end: 20040101
  2. GABAPENTIN [Suspect]
     Indication: GASTRIC DISORDER
     Dosage: 800MG, QID, ORAL
     Route: 048
     Dates: start: 20100101
  3. GABAPENTIN [Suspect]
     Indication: NEUROPATHY PERIPHERAL
     Dosage: 800MG, QID, ORAL
     Route: 048
     Dates: start: 20100101
  4. NEURONTIN [Suspect]
     Indication: GASTRIC DISORDER
     Dosage: 600MG, BID, ORAL
     Route: 048
     Dates: start: 20011101
  5. NEURONTIN [Suspect]
     Indication: NEUROPATHY PERIPHERAL
     Dosage: 600MG, BID, ORAL
     Route: 048
     Dates: start: 20011101
  6. FENTANYL CITRATE [Suspect]
     Indication: GASTRIC DISORDER
     Dosage: 0.25MG, Q3D, TRANSDERMAL
     Route: 062
  7. FENTANYL CITRATE [Suspect]
     Indication: NEUROPATHY PERIPHERAL
     Dosage: 0.25MG, Q3D, TRANSDERMAL
     Route: 062
  8. KEFLEX CAPSULE [Suspect]
     Indication: SINUSITIS
     Dosage: 500MG, TID, ORAL
     Route: 048
  9. VICODIN [Suspect]
     Indication: NEUROPATHY PERIPHERAL
     Dosage: 10/650MG, 1.5 TAB TID, ORAL
     Route: 048
  10. LANTUS [Concomitant]
  11. HUMALOG [Concomitant]
  12. FLUTICASONE PROPIONATE [Concomitant]
  13. ACETYLSALICYLIC ACID SRT [Concomitant]
  14. NITROGLYCERIN [Concomitant]

REACTIONS (12)
  - ABDOMINAL PAIN UPPER [None]
  - CONSTIPATION [None]
  - DRUG INEFFECTIVE [None]
  - DRUG INTERACTION [None]
  - DYSURIA [None]
  - FATIGUE [None]
  - HAND FRACTURE [None]
  - HYPERSOMNIA [None]
  - LIVER DISORDER [None]
  - MEMORY IMPAIRMENT [None]
  - MOOD ALTERED [None]
  - SINUSITIS [None]
